FAERS Safety Report 14204025 (Version 3)
Quarter: 2018Q3

REPORT INFORMATION
  Report Type: Spontaneous
  Country: US (occurrence: US)
  Receive Date: 20171120
  Receipt Date: 20180702
  Transmission Date: 20181010
  Serious: No
  Sender: FDA-Public Use
  Company Number: US-PFIZER INC-2017496924

PATIENT
  Age: 53 Year
  Sex: Female
  Weight: 72.56 kg

DRUGS (17)
  1. DOCETAXEL. [Suspect]
     Active Substance: DOCETAXEL
     Dosage: 106.2 MG, CYCLIC (EVERY 3 WEEKS, SIXTH CYCLE)
     Dates: end: 20120426
  2. TAXOTERE [Suspect]
     Active Substance: DOCETAXEL
     Dosage: 107.4  MG, CYCLIC (EVERY 3 WEEKS, FIFTH CYCLE)
  3. TAXOTERE [Suspect]
     Active Substance: DOCETAXEL
     Dosage: 106.2 MG, CYCLIC (EVERY 3 WEEKS, SIXTH CYCLE)
     Dates: end: 20120426
  4. HERCEPTIN [Concomitant]
     Active Substance: TRASTUZUMAB
     Indication: BREAST CANCER
     Dosage: UNK, CYCLIC (EVERY 3 WEEKS)
  5. PARAPLATIN [Concomitant]
     Active Substance: CARBOPLATIN
     Indication: CHEMOTHERAPY
     Dosage: UNK
  6. DOCETAXEL. [Suspect]
     Active Substance: DOCETAXEL
     Indication: BREAST CANCER
     Dosage: 131.2 MG, CYCLIC (EVERY 3 WEEKS, SECOND CYCLE)
  7. DOCETAXEL. [Suspect]
     Active Substance: DOCETAXEL
     Dosage: 107.4 MG, CYCLIC (EVERY 3 WEEKS, FIFTH CYCLE)
  8. TAXOTERE [Suspect]
     Active Substance: DOCETAXEL
     Dosage: 106.8  MG, CYCLIC (EVERY 3 WEEKS, FOURTH CYCLE)
  9. DOCETAXEL. [Suspect]
     Active Substance: DOCETAXEL
     Indication: CHEMOTHERAPY
     Dosage: 131.2 MG, CYCLIC (EVERY 3 WEEKS, 1ST CYCLE)
     Dates: start: 20111229
  10. TAXOTERE [Suspect]
     Active Substance: DOCETAXEL
     Dosage: 132.8  MG, CYCLIC (EVERY 3 WEEKS, THIRD CYCLE)
  11. DOCETAXEL. [Suspect]
     Active Substance: DOCETAXEL
     Dosage: 106.8 MG, CYCLIC (EVERY 3 WEEKS, FOURTH CYCLE)
  12. TAXOTERE [Suspect]
     Active Substance: DOCETAXEL
     Indication: CHEMOTHERAPY
     Dosage: 131.2 MG, CYCLIC (EVERY 3 WEEKS, FIRST CYCLE)
     Dates: start: 20111229
  13. PARAPLATIN [Concomitant]
     Active Substance: CARBOPLATIN
     Indication: BREAST CANCER
  14. HERCEPTIN [Concomitant]
     Active Substance: TRASTUZUMAB
     Indication: CHEMOTHERAPY
     Dosage: UNK, WEEKLY
  15. DOCETAXEL. [Suspect]
     Active Substance: DOCETAXEL
     Dosage: 132.8 MG, CYCLIC (EVERY 3 WEEKS, THIRD CYCLE)
     Dates: start: 20111229
  16. TAXOTERE [Suspect]
     Active Substance: DOCETAXEL
     Indication: BREAST CANCER
     Dosage: 131.2 MG, CYCLIC (EVERY 3 WEEKS, SECOND CYCLE)
  17. HYDROCHLOROTHIAZIDE. [Concomitant]
     Active Substance: HYDROCHLOROTHIAZIDE
     Dosage: UNK
     Dates: start: 200412, end: 20111231

REACTIONS (8)
  - Hair disorder [Not Recovered/Not Resolved]
  - Dry skin [Not Recovered/Not Resolved]
  - Nail bed disorder [Not Recovered/Not Resolved]
  - Alopecia [Not Recovered/Not Resolved]
  - Depression [Unknown]
  - Madarosis [Not Recovered/Not Resolved]
  - Hair texture abnormal [Not Recovered/Not Resolved]
  - Hair colour changes [Not Recovered/Not Resolved]

NARRATIVE: CASE EVENT DATE: 2012
